FAERS Safety Report 9666056 (Version 1)
Quarter: 2013Q4

REPORT INFORMATION
  Report Type: Spontaneous
  Country: US (occurrence: US)
  Receive Date: 20131104
  Receipt Date: 20131104
  Transmission Date: 20140711
  Serious: No
  Sender: FDA-Public Use
  Company Number: US-PFIZER INC-2013310959

PATIENT
  Age: 87 Year
  Sex: Female
  Weight: 58.96 kg

DRUGS (5)
  1. NORVASC [Suspect]
     Indication: HYPERTENSION
     Dosage: 5 MG, ONCE DAILY
     Route: 048
     Dates: start: 2008
  2. ENERGIZING SOY PROTEIN [Interacting]
     Dosage: UNK, ONCE A DAY
     Dates: start: 2011
  3. CORDARONE [Concomitant]
     Dosage: UNK
  4. BENICAR HCT [Concomitant]
     Dosage: UNK
  5. LEVOTHYROXINE [Concomitant]
     Dosage: UNK

REACTIONS (1)
  - Drug interaction [Unknown]
